FAERS Safety Report 15653690 (Version 1)
Quarter: 2018Q4

REPORT INFORMATION
  Report Type: Spontaneous
  Country: MY (occurrence: MY)
  Receive Date: 20181124
  Receipt Date: 20181124
  Transmission Date: 20190205
  Serious: Yes (Other)
  Sender: FDA-Public Use
  Company Number: PHHY2018MY157822

PATIENT
  Age: 8 Month
  Sex: Female

DRUGS (2)
  1. METHYLPREDNISOLONE. [Suspect]
     Active Substance: METHYLPREDNISOLONE
     Indication: ACUTE DISSEMINATED ENCEPHALOMYELITIS
     Dosage: 30 MG/KG, QD
     Route: 042
  2. IMMUNE GLOBULIN [Suspect]
     Active Substance: HUMAN IMMUNOGLOBULIN G
     Indication: ACUTE DISSEMINATED ENCEPHALOMYELITIS
     Dosage: 2 G/KG, UNK
     Route: 042

REACTIONS (4)
  - Lymphadenopathy [Recovering/Resolving]
  - Oedema [Recovering/Resolving]
  - Product use in unapproved indication [Unknown]
  - Mycobacterium tuberculosis complex test positive [Unknown]
